FAERS Safety Report 7220608-8 (Version None)
Quarter: 2011Q1

REPORT INFORMATION
  Report Type: 
  Country: None (occurrence: None)
  Receive Date: 20110111
  Receipt Date: 20110104
  Transmission Date: 20110831
  Serious: Yes (Death, Hospitalization)
  Sender: FDA-Public Use
  Company Number: TW-BAXTER-2011BH000424

PATIENT
  Age: 80 Year
  Sex: Female

DRUGS (4)
  1. DIANEAL [Suspect]
     Indication: PERITONEAL DIALYSIS
     Route: 033
     Dates: start: 20081201
  2. EXTRANEAL [Suspect]
     Route: 033
     Dates: start: 20081201
  3. DIANEAL [Suspect]
     Route: 033
     Dates: start: 20081201
  4. EXTRANEAL [Suspect]
     Indication: PERITONEAL DIALYSIS
     Route: 033
     Dates: start: 20081201

REACTIONS (1)
  - CARDIAC FAILURE CONGESTIVE [None]
